FAERS Safety Report 20382006 (Version 1)
Quarter: 2022Q1

REPORT INFORMATION
  Report Type: Spontaneous
  Country: US (occurrence: US)
  Receive Date: 20220127
  Receipt Date: 20220127
  Transmission Date: 20220424
  Serious: Yes (Other)
  Sender: FDA-Public Use
  Company Number: US-ABBVIE-22K-163-4251444-00

PATIENT
  Age: 34 Year
  Sex: Female

DRUGS (2)
  1. PAXLOVID [Suspect]
     Active Substance: NIRMATRELVIR\RITONAVIR
     Indication: Product used for unknown indication
     Route: 065
  2. PAXLOVID [Suspect]
     Active Substance: NIRMATRELVIR\RITONAVIR
     Indication: Product used for unknown indication
     Route: 065

REACTIONS (16)
  - Angina pectoris [Unknown]
  - Tachycardia [Unknown]
  - Dizziness [Unknown]
  - Intentional dose omission [Unknown]
  - Mouth swelling [Unknown]
  - Thinking abnormal [Unknown]
  - Hypersomnia [Unknown]
  - Dyspnoea [Unknown]
  - Condition aggravated [Unknown]
  - Malaise [Recovered/Resolved]
  - Disorientation [Unknown]
  - Presyncope [Unknown]
  - Confusional state [Unknown]
  - Somnolence [Unknown]
  - Hypertension [Unknown]
  - Dysgeusia [Unknown]
